FAERS Safety Report 24730490 (Version 5)
Quarter: 2025Q2

REPORT INFORMATION
  Report Type: Report from Study
  Country: CA (occurrence: CA)
  Receive Date: 20241213
  Receipt Date: 20250513
  Transmission Date: 20250716
  Serious: Yes (Hospitalization, Other)
  Sender: TAKEDA
  Company Number: CA-TAKEDA-2024TUS121700

PATIENT
  Sex: Male

DRUGS (15)
  1. VEDOLIZUMAB [Suspect]
     Active Substance: VEDOLIZUMAB
     Indication: Colitis ulcerative
  2. IMURAN [Concomitant]
     Active Substance: AZATHIOPRINE
  3. DAPAGLIFLOZIN [Concomitant]
     Active Substance: DAPAGLIFLOZIN
  4. NIFEDIPINE [Concomitant]
     Active Substance: NIFEDIPINE
  5. INDAPAMIDE [Concomitant]
     Active Substance: INDAPAMIDE
  6. PERINDOPRIL [Concomitant]
     Active Substance: PERINDOPRIL
  7. SPIRONOLACTONE [Concomitant]
     Active Substance: SPIRONOLACTONE
  8. ROSUVASTATIN [Concomitant]
     Active Substance: ROSUVASTATIN
  9. RABEPRAZOLE [Concomitant]
     Active Substance: RABEPRAZOLE
  10. FUROSEMIDE [Concomitant]
     Active Substance: FUROSEMIDE
  11. ATENOLOL [Concomitant]
     Active Substance: ATENOLOL
  12. OZEMPIC [Concomitant]
     Active Substance: SEMAGLUTIDE
  13. LANTUS [Concomitant]
     Active Substance: INSULIN GLARGINE
  14. APIDRA [Concomitant]
     Active Substance: INSULIN GLULISINE
  15. ZOPICLONE [Concomitant]
     Active Substance: ZOPICLONE

REACTIONS (1)
  - COVID-19 pneumonia [Unknown]
